FAERS Safety Report 8953080 (Version 1)
Quarter: 2012Q4

REPORT INFORMATION
  Report Type: 
  Country: IT (occurrence: IT)
  Receive Date: 20121205
  Receipt Date: 20121205
  Transmission Date: 20130627
  Serious: Yes (Hospitalization)
  Sender: FDA-Public Use
  Company Number: IT-BAYER-2012-126946

PATIENT
  Age: 89 Year
  Sex: Female

DRUGS (5)
  1. CARDIOASPIRIN [Suspect]
     Indication: AORTIC STENOSIS + INCOMPETENCE
     Dosage: 100 mg, QD
     Route: 048
     Dates: start: 20120101, end: 20120505
  2. LANSOPRAZOLE [Concomitant]
     Dosage: UNK
  3. LASIX [Concomitant]
     Dosage: UNK
  4. NITRODERM TTS [Concomitant]
     Dosage: UNK
  5. CONGESCOR [Concomitant]
     Dosage: UNK

REACTIONS (5)
  - Rectal haemorrhage [Recovering/Resolving]
  - Respiratory failure [Recovering/Resolving]
  - Abdominal pain [Recovering/Resolving]
  - Nausea [Recovering/Resolving]
  - Oedema peripheral [Recovering/Resolving]
